FAERS Safety Report 6945774-0 (Version None)
Quarter: 2010Q3

REPORT INFORMATION
  Report Type: 
  Country: None (occurrence: None)
  Receive Date: 20100827
  Receipt Date: 20100816
  Transmission Date: 20110219
  Serious: Yes (Other)
  Sender: FDA-Public Use
  Company Number: B0669688A

PATIENT
  Age: 72 Year
  Sex: Male

DRUGS (1)
  1. SERETIDE DISKUS [Suspect]
     Indication: CHRONIC OBSTRUCTIVE PULMONARY DISEASE
     Dosage: 1PUFF PER DAY
     Route: 055
     Dates: start: 20091001

REACTIONS (1)
  - PROSTATE CANCER [None]
